FAERS Safety Report 5956559-6 (Version None)
Quarter: 2008Q4

REPORT INFORMATION
  Report Type: 
  Country: None (occurrence: None)
  Receive Date: 20081114
  Receipt Date: 20081114
  Transmission Date: 20090506
  Serious: Yes (Other)
  Sender: FDA-Public Use
  Company Number: None

PATIENT
  Age: 37 Year
  Sex: Female
  Weight: 74.8435 kg

DRUGS (1)
  1. NASAL SPRAY SODIUM CHLORIDE .65% TARGET [Suspect]
     Indication: NASAL DRYNESS
     Dosage: NASAL SPRAY ONCE NASAL
     Route: 045
     Dates: start: 20081112, end: 20081112

REACTIONS (5)
  - HYPOAESTHESIA ORAL [None]
  - INTRANASAL HYPOAESTHESIA [None]
  - NASAL DISCOMFORT [None]
  - PHARYNGEAL HYPOAESTHESIA [None]
  - PRODUCT QUALITY ISSUE [None]
